FAERS Safety Report 5591102-5 (Version None)
Quarter: 2008Q1

REPORT INFORMATION
  Report Type: 
  Country: None (occurrence: None)
  Receive Date: 20080115
  Receipt Date: 20080108
  Transmission Date: 20080703
  Serious: Yes (Death, Hospitalization)
  Sender: FDA-Public Use
  Company Number: PHRM2007FR02605

PATIENT
  Age: 57 Year
  Sex: Male

DRUGS (12)
  1. INEGY [Suspect]
     Dosage: 10/40 MG/DAY
     Route: 048
     Dates: start: 20070715, end: 20070926
  2. PREVISCAN [Concomitant]
     Route: 048
     Dates: end: 20000925
  3. COVERSYL /FRA/ [Concomitant]
     Dosage: 4 MG, QD
     Route: 048
  4. NEO-MERCAZOLE TAB [Concomitant]
     Indication: HYPERTHYROIDISM
     Route: 048
     Dates: start: 20070915, end: 20070921
  5. CELLCEPT [Concomitant]
  6. MEDROL [Concomitant]
  7. CARDENSIEL [Concomitant]
  8. MOPRAL [Concomitant]
  9. LASILIX [Concomitant]
  10. NEORAL [Suspect]
     Indication: RENAL TRANSPLANT
     Dosage: 150 MG/DAY
     Route: 048
     Dates: end: 20070924
  11. NEORAL [Suspect]
     Dosage: 60 MG/DAY
     Route: 048
     Dates: start: 20070925, end: 20071005
  12. NEORAL [Suspect]
     Dosage: 50 MG/DAY
     Route: 048
     Dates: start: 20071006

REACTIONS (16)
  - ALANINE AMINOTRANSFERASE INCREASED [None]
  - ASPARTATE AMINOTRANSFERASE INCREASED [None]
  - BLOOD CREATINE PHOSPHOKINASE INCREASED [None]
  - BLOOD THYROID STIMULATING HORMONE DECREASED [None]
  - CARDIAC ARREST [None]
  - DRUG INTERACTION [None]
  - HYPERTHYROIDISM [None]
  - MOTOR DYSFUNCTION [None]
  - MUSCULAR WEAKNESS [None]
  - MYALGIA [None]
  - PARALYSIS [None]
  - PARESIS [None]
  - PULMONARY EMBOLISM [None]
  - RENAL FAILURE ACUTE [None]
  - RHABDOMYOLYSIS [None]
  - THYROXINE INCREASED [None]
